FAERS Safety Report 13972429 (Version 1)
Quarter: 2017Q3

REPORT INFORMATION
  Report Type: Spontaneous
  Country: US (occurrence: US)
  Receive Date: 20170915
  Receipt Date: 20170915
  Transmission Date: 20171128
  Serious: Yes (Hospitalization, Other)
  Sender: FDA-Public Use
  Company Number: US-GLAXOSMITHKLINE-US2017139881

PATIENT
  Sex: Female

DRUGS (4)
  1. CITRUCEL [Suspect]
     Active Substance: METHYLCELLULOSE (4000 MPA.S)
     Indication: BOWEL MOVEMENT IRREGULARITY
     Dosage: UNK, HAVING TABLESPOON AT LEAST AFTER SUPPER
  2. CITRUCEL [Suspect]
     Active Substance: METHYLCELLULOSE (4000 MPA.S)
     Indication: SUPPLEMENTATION THERAPY
     Dosage: 1 DF, BID, SHE SHOULD TAKE IT TWICE A DAY. ONE TABLESPOON AFTER LUNCH AND ONE TABLESPOON AFTER SUPPE
  3. CITRUCEL [Suspect]
     Active Substance: METHYLCELLULOSE (4000 MPA.S)
     Indication: BOWEL MOVEMENT IRREGULARITY
     Dosage: 1 DF, UNK, TAKE ONE TABLESPOON AFTER SUPPER
     Dates: start: 20170719
  4. TUMS CHEWY DELIGHTS [Suspect]
     Active Substance: CALCIUM CARBONATE
     Indication: DYSPEPSIA
     Dosage: UNK

REACTIONS (14)
  - Chest discomfort [Recovered/Resolved]
  - Malaise [Unknown]
  - Drug ineffective [Unknown]
  - Chest pain [Recovered/Resolved]
  - Therapeutic response unexpected [Unknown]
  - Off label use [Unknown]
  - Respiratory disorder [Recovered/Resolved]
  - Coma [Recovered/Resolved]
  - Speech disorder [Unknown]
  - Defaecation urgency [Unknown]
  - Incorrect drug administration duration [Unknown]
  - Dyspnoea [Recovered/Resolved]
  - Poor quality sleep [Unknown]
  - Weight decreased [Unknown]
